FAERS Safety Report 19118810 (Version 1)
Quarter: 2021Q2

REPORT INFORMATION
  Report Type: Other
  Country: JP (occurrence: JP)
  Receive Date: 20210409
  Receipt Date: 20210409
  Transmission Date: 20210717
  Serious: Yes (Other)
  Sender: FDA-Public Use
  Company Number: JP-ROCHE-2808154

PATIENT

DRUGS (3)
  1. BEVACIZUMAB. [Suspect]
     Active Substance: BEVACIZUMAB
     Indication: OVARIAN CLEAR CELL CARCINOMA
     Dosage: ON DAY 1, WITH THE CYCLE REPEATED EVERY 4 WEEKS
     Route: 065
  2. GEMCITABINE. [Suspect]
     Active Substance: GEMCITABINE
     Indication: OVARIAN CLEAR CELL CARCINOMA
     Route: 065
  3. CISPLATIN. [Suspect]
     Active Substance: CISPLATIN
     Indication: OVARIAN CLEAR CELL CARCINOMA
     Route: 065

REACTIONS (3)
  - Anaemia [Unknown]
  - Leukopenia [Unknown]
  - Neutropenia [Unknown]
